FAERS Safety Report 15170404 (Version 2)
Quarter: 2018Q3

REPORT INFORMATION
  Report Type: Spontaneous
  Country: US (occurrence: US)
  Receive Date: 20180720
  Receipt Date: 20180928
  Transmission Date: 20181010
  Serious: Yes (Other)
  Sender: FDA-Public Use
  Company Number: US-BRISTOL-MYERS SQUIBB COMPANY-BMS-2018-064624

PATIENT
  Sex: Male

DRUGS (1)
  1. YERVOY [Suspect]
     Active Substance: IPILIMUMAB
     Indication: MALIGNANT MELANOMA
     Dosage: 750 MG, Q3WK
     Route: 042
     Dates: start: 20160108

REACTIONS (3)
  - Hepatic enzyme increased [Unknown]
  - Clostridium difficile infection [Unknown]
  - Off label use [Unknown]
